FAERS Safety Report 8840733 (Version 2)
Quarter: 2015Q3

REPORT INFORMATION
  Report Type: Report from Study
  Country: US (occurrence: US)
  Receive Date: 20121015
  Receipt Date: 20150821
  Transmission Date: 20151125
  Serious: Yes (Hospitalization)
  Sender: FDA-Public Use
  Company Number: US-ROCHE-1109722

PATIENT
  Sex: Male

DRUGS (2)
  1. NUTROPIN [Suspect]
     Active Substance: SOMATROPIN
     Indication: DWARFISM
     Route: 058
  2. TESTOSTERONE CYPIONATE. [Concomitant]
     Active Substance: TESTOSTERONE CYPIONATE

REACTIONS (15)
  - Abdominal distension [Unknown]
  - Hypogonadism [Unknown]
  - Anxiety [Unknown]
  - Arthralgia [Unknown]
  - Fatigue [Unknown]
  - Sleep disorder [Unknown]
  - Hypertension [Unknown]
  - Weight increased [Unknown]
  - Oedema peripheral [Unknown]
  - Cardiac disorder [Unknown]
  - Sexual dysfunction [Unknown]
  - Fluid retention [Unknown]
  - Male orgasmic disorder [Unknown]
  - Depression [Unknown]
  - Heart rate increased [Unknown]
